FAERS Safety Report 12551602 (Version 1)
Quarter: 2016Q3

REPORT INFORMATION
  Report Type: Spontaneous
  Country: US (occurrence: None)
  Receive Date: 20160712
  Receipt Date: 20160712
  Transmission Date: 20161109
  Serious: Yes (Hospitalization, Disabling, Other)
  Sender: FDA-Public Use
  Company Number: None

PATIENT
  Age: 67 Year
  Sex: Female
  Weight: 38.56 kg

DRUGS (4)
  1. DILT-XR SR [Concomitant]
  2. IPRATROPIUM BROMIDE. [Concomitant]
     Active Substance: IPRATROPIUM BROMIDE
  3. LEVALBUTEROL. [Concomitant]
     Active Substance: LEVALBUTEROL
  4. LEVAQUIN [Suspect]
     Active Substance: LEVOFLOXACIN
     Indication: CHRONIC OBSTRUCTIVE PULMONARY DISEASE
     Route: 042
     Dates: start: 20150827, end: 20150901

REACTIONS (7)
  - Impaired work ability [None]
  - Asthenia [None]
  - Tendon disorder [None]
  - Pain in extremity [None]
  - Activities of daily living impaired [None]
  - Arthralgia [None]
  - Exercise tolerance decreased [None]

NARRATIVE: CASE EVENT DATE: 20150901
